FAERS Safety Report 5307408-0 (Version None)
Quarter: 2007Q2

REPORT INFORMATION
  Report Type: 
  Country: None (occurrence: None)
  Receive Date: 20070425
  Receipt Date: 20070416
  Transmission Date: 20071010
  Serious: Yes (Other)
  Sender: FDA-Public Use
  Company Number: JP-ROCHE-438070

PATIENT
  Age: 14 Year
  Sex: Male
  Weight: 50 kg

DRUGS (4)
  1. TAMIFLU [Suspect]
     Route: 048
     Dates: start: 20060213, end: 20060214
  2. COCARL [Concomitant]
     Dosage: TAKEN AS NEEDED
     Route: 048
  3. MEDICON [Concomitant]
     Route: 048
  4. POLARAMINE [Concomitant]
     Route: 048

REACTIONS (3)
  - ABNORMAL BEHAVIOUR [None]
  - DEPRESSED LEVEL OF CONSCIOUSNESS [None]
  - NAUSEA [None]
